FAERS Safety Report 7056277-X (Version None)
Quarter: 2010Q4

REPORT INFORMATION
  Report Type: 
  Country: None (occurrence: None)
  Receive Date: 20101021
  Receipt Date: 20101004
  Transmission Date: 20110411
  Serious: Yes (Death, Other)
  Sender: FDA-Public Use
  Company Number: JP-AMGEN LTD.-KDC442364

PATIENT

DRUGS (21)
  1. PANITUMUMAB [Suspect]
     Indication: COLORECTAL CANCER
     Dosage: 6 MG, Q2WK
     Route: 041
     Dates: start: 20100624
  2. OXALIPLATIN [Concomitant]
     Indication: COLORECTAL CANCER
     Route: 041
     Dates: start: 20100624, end: 20100901
  3. FLUOROURACIL [Concomitant]
     Indication: COLORECTAL CANCER
     Route: 040
     Dates: start: 20100624, end: 20100901
  4. FLUOROURACIL [Concomitant]
     Route: 041
     Dates: start: 20100624, end: 20100901
  5. CALCIUM LEVOFOLINATE [Concomitant]
     Indication: COLORECTAL CANCER
     Dosage: UNK UNK, UNK
     Route: 041
     Dates: start: 20100623
  6. CALCIUM LEVOFOLINATE [Concomitant]
     Route: 041
     Dates: start: 20100623, end: 20100901
  7. CORTICOSTEROIDS [Concomitant]
     Indication: PROPHYLAXIS
     Route: 065
  8. OXINORM [Concomitant]
     Route: 048
  9. PANTOSIN [Concomitant]
     Route: 048
  10. MAGMITT [Concomitant]
     Route: 048
  11. GENTACIN [Concomitant]
     Route: 062
  12. MUCOSTA [Concomitant]
     Route: 048
  13. HIRUDOID SOFT [Concomitant]
     Route: 062
  14. MINOCYCLINE HCL [Concomitant]
     Route: 048
  15. LIDOMEX [Concomitant]
     Route: 062
  16. DUROTEP MT PATCH [Concomitant]
     Route: 062
  17. EMEND [Concomitant]
     Route: 048
  18. TSUMURA GOSHAJINKIGAN [Concomitant]
     Route: 048
  19. PETROLATUM [Concomitant]
     Route: 062
  20. CRAVIT [Concomitant]
     Route: 047
  21. OFLOXACIN [Concomitant]
     Route: 047

REACTIONS (2)
  - HEAT ILLNESS [None]
  - RASH [None]
